FAERS Safety Report 8270781-8 (Version None)
Quarter: 2012Q2

REPORT INFORMATION
  Report Type: 
  Country: None (occurrence: None)
  Receive Date: 20120410
  Receipt Date: 20120329
  Transmission Date: 20120825
  Serious: Yes (Other)
  Sender: FDA-Public Use
  Company Number: US-SANOFI-AVENTIS-2012SA021795

PATIENT
  Sex: Male

DRUGS (1)
  1. PLAVIX [Suspect]

REACTIONS (3)
  - HAEMORRHAGE [None]
  - ISCHAEMIC STROKE [None]
  - FALL [None]
